FAERS Safety Report 5082686-4 (Version None)
Quarter: 2006Q3

REPORT INFORMATION
  Report Type: 
  Country: None (occurrence: None)
  Receive Date: 20060816
  Receipt Date: 20060816
  Transmission Date: 20061208
  Serious: Yes (Other)
  Sender: FDA-Public Use
  Company Number: None

PATIENT
  Age: 89 Year
  Sex: Male
  Weight: 90.7194 kg

DRUGS (2)
  1. NORVASC [Suspect]
     Indication: ATRIAL FIBRILLATION
     Dosage: DAILY PO
     Route: 048
     Dates: start: 20060415, end: 20060808
  2. NORVASC [Suspect]
     Indication: TRANSIENT ISCHAEMIC ATTACK
     Dosage: DAILY PO
     Route: 048
     Dates: start: 20060415, end: 20060808

REACTIONS (3)
  - ASTHENIA [None]
  - GAIT DISTURBANCE [None]
  - TREMOR [None]
